FAERS Safety Report 16712761 (Version 3)
Quarter: 2019Q3

REPORT INFORMATION
  Report Type: Spontaneous
  Country: US (occurrence: US)
  Receive Date: 20190817
  Receipt Date: 20190913
  Transmission Date: 20191004
  Serious: Yes (Other)
  Sender: FDA-Public Use
  Company Number: US-AMGEN-USASP2019130038

PATIENT
  Age: 46 Year
  Sex: Male

DRUGS (1)
  1. ETANERCEPT [Suspect]
     Active Substance: ETANERCEPT
     Indication: SPONDYLITIS
     Dosage: 25 MILLIGRAM, 2 TIMES/WK
     Route: 058

REACTIONS (2)
  - Drug ineffective [Unknown]
  - Iridocyclitis [Unknown]
